FAERS Safety Report 6244804-1 (Version None)
Quarter: 2009Q2

REPORT INFORMATION
  Report Type: 
  Country: None (occurrence: None)
  Receive Date: 20090625
  Receipt Date: 20090619
  Transmission Date: 20091009
  Serious: Yes (Death)
  Sender: FDA-Public Use
  Company Number: US-WATSON-2009-04674

PATIENT
  Age: 27 Year
  Sex: Female

DRUGS (8)
  1. TEMAZEPAM [Suspect]
     Indication: DRUG USE FOR UNKNOWN INDICATION
     Dosage: UNK
     Route: 048
  2. OXYCODONE (WATSON LABORATORIES) [Suspect]
     Indication: MUSCULOSKELETAL PAIN
     Dosage: 5 MG, QID
     Route: 048
  3. MORPHINE SULFATE INJ [Suspect]
     Indication: MUSCULOSKELETAL PAIN
     Dosage: 30 MG, QAM
     Route: 048
  4. DOXEPIN (WATSON LABORATORIES) [Suspect]
     Indication: DRUG USE FOR UNKNOWN INDICATION
     Dosage: UNK
     Route: 048
  5. DIAZEPAM [Suspect]
     Indication: DRUG USE FOR UNKNOWN INDICATION
     Dosage: UNK
     Route: 048
  6. HYDROCODONE BITARTRATE [Suspect]
     Indication: MUSCULOSKELETAL PAIN
     Dosage: 10 MG, QID
     Route: 048
  7. METHADONE [Suspect]
     Indication: MUSCULOSKELETAL PAIN
     Dosage: 10 MG, QHS
     Route: 048
  8. NORDIAZEPAM [Suspect]
     Indication: DRUG USE FOR UNKNOWN INDICATION
     Dosage: UNK
     Route: 048

REACTIONS (1)
  - MULTIPLE DRUG OVERDOSE ACCIDENTAL [None]
